FAERS Safety Report 5026357-9 (Version None)
Quarter: 2006Q2

REPORT INFORMATION
  Report Type: 
  Country: None (occurrence: None)
  Receive Date: 20060608
  Receipt Date: 20030106
  Transmission Date: 20061013
  Serious: No
  Sender: FDA-Public Use
  Company Number: 2002-12-1498

PATIENT
  Sex: Female
  Weight: 72 kg

DRUGS (3)
  1. ETHYOL [Suspect]
     Indication: PROPHYLAXIS
     Dosage: INTRAVENOUS
     Route: 042
     Dates: start: 20020425, end: 20020501
  2. RADIATION THERAPY [Suspect]
     Indication: BREAST CANCER
     Dosage: OTHER
     Route: 050
  3. TAXOTERE [Suspect]
     Indication: BREAST CANCER

REACTIONS (8)
  - FEBRILE NEUTROPENIA [None]
  - INJECTION SITE PAIN [None]
  - INJECTION SITE PRURITUS [None]
  - INJECTION SITE RASH [None]
  - LEUKOPENIA [None]
  - PRURITUS [None]
  - RASH [None]
  - RASH GENERALISED [None]
